FAERS Safety Report 24168760 (Version 2)
Quarter: 2024Q4

REPORT INFORMATION
  Report Type: Spontaneous
  Country: JP (occurrence: JP)
  Receive Date: 20240802
  Receipt Date: 20241104
  Transmission Date: 20250114
  Serious: Yes (Death, Hospitalization, Other)
  Sender: ALEXION PHARMACEUTICALS
  Company Number: 2024A174376

PATIENT
  Age: 60 Year

DRUGS (3)
  1. FASLODEX [Suspect]
     Active Substance: FULVESTRANT
     Indication: Breast cancer female
     Dosage: DOSE UNKNOWN
  2. ABEMACICLIB [Suspect]
     Active Substance: ABEMACICLIB
     Indication: Breast cancer female
     Dosage: REPEATED DOSE INTERRUPTION AND DOSE REDUCTION
  3. ABEMACICLIB [Suspect]
     Active Substance: ABEMACICLIB
     Dosage: DOSE UNKNOWN

REACTIONS (1)
  - Metastases to liver [Fatal]
